FAERS Safety Report 5270873-1 (Version None)
Quarter: 2007Q1

REPORT INFORMATION
  Report Type: 
  Country: None (occurrence: None)
  Receive Date: 20061214
  Receipt Date: 20051107
  Transmission Date: 20070707
  Serious: Yes (Hospitalization, Other)
  Sender: FDA-Public Use
  Company Number: 2005153110

PATIENT
  Age: 82 Year
  Sex: Female

DRUGS (2)
  1. BEXTRA [Suspect]
     Indication: RHEUMATOID ARTHRITIS
     Dates: end: 20041101
  2. NORVASC [Concomitant]

REACTIONS (3)
  - AMNESIA [None]
  - ARTHRITIS [None]
  - CONVULSION [None]
